FAERS Safety Report 16437871 (Version 5)
Quarter: 2019Q3

REPORT INFORMATION
  Report Type: Spontaneous
  Country: BR (occurrence: BR)
  Receive Date: 20190616
  Receipt Date: 20190813
  Transmission Date: 20191004
  Serious: Yes (Death, Disabling, Other)
  Sender: FDA-Public Use
  Company Number: BR-009507513-1906BRA005447

PATIENT
  Age: 16 Year
  Sex: Male
  Weight: 72 kg

DRUGS (1)
  1. NOXAFIL [Suspect]
     Active Substance: POSACONAZOLE
     Indication: MUCORMYCOSIS
     Dosage: 400 MILLIGRAM, Q12H
     Route: 048
     Dates: start: 20190614

REACTIONS (8)
  - Condition aggravated [Not Recovered/Not Resolved]
  - Renal impairment [Unknown]
  - Acute respiratory distress syndrome [Unknown]
  - Cardiovascular insufficiency [Unknown]
  - Mucosal inflammation [Not Recovered/Not Resolved]
  - Death [Fatal]
  - Shock [Unknown]
  - Incorrect route of product administration [Unknown]

NARRATIVE: CASE EVENT DATE: 20190701
